FAERS Safety Report 7484215-4 (Version None)
Quarter: 2011Q2

REPORT INFORMATION
  Report Type: 
  Country: None (occurrence: None)
  Receive Date: 20110517
  Receipt Date: 20110504
  Transmission Date: 20111010
  Serious: Yes (Hospitalization, Other)
  Sender: FDA-Public Use
  Company Number: PHHY2011FR38428

PATIENT
  Sex: Male
  Weight: 52 kg

DRUGS (1)
  1. ZOMETA [Suspect]
     Indication: METASTASES TO BONE
     Dosage: UNK
     Route: 042
     Dates: start: 20110504

REACTIONS (6)
  - GENERAL PHYSICAL HEALTH DETERIORATION [None]
  - DEHYDRATION [None]
  - HYPOCALCAEMIA [None]
  - ABDOMINAL PAIN UPPER [None]
  - CONVULSION [None]
  - DIARRHOEA [None]
